FAERS Safety Report 7583314-6 (Version None)
Quarter: 2011Q2

REPORT INFORMATION
  Report Type: 
  Country: None (occurrence: None)
  Receive Date: 20110630
  Receipt Date: 20110624
  Transmission Date: 20111010
  Serious: Yes (Other)
  Sender: FDA-Public Use
  Company Number: US-PURDUE-USA-2010-0056316

PATIENT
  Sex: Female
  Weight: 126.98 kg

DRUGS (4)
  1. OXYCONTIN [Suspect]
     Indication: BACK PAIN
     Dosage: 10 MG, TID
     Route: 048
     Dates: end: 20100928
  2. SKELAXIN [Concomitant]
     Indication: MUSCLE RELAXANT THERAPY
     Dosage: 800 MG, HS
     Route: 048
  3. GABAPENTIN [Concomitant]
     Indication: NEURALGIA
     Dosage: 600 MG, HS
     Route: 048
  4. PERCOCET [Concomitant]
     Indication: PAIN
     Dosage: 5 MG, Q6H
     Route: 048

REACTIONS (2)
  - JOINT SWELLING [None]
  - FATIGUE [None]
